FAERS Safety Report 5816351-X (Version None)
Quarter: 2008Q3

REPORT INFORMATION
  Report Type: 
  Country: None (occurrence: None)
  Receive Date: 20080721
  Receipt Date: 20080124
  Transmission Date: 20090109
  Serious: No
  Sender: FDA-Public Use
  Company Number: US-BAUSCH-2008BL000299

PATIENT
  Age: 37 Year
  Sex: Female

DRUGS (1)
  1. OPCON-A [Suspect]
     Indication: EYE PRURITUS
     Route: 047
     Dates: start: 20080124, end: 20080124

REACTIONS (1)
  - MYDRIASIS [None]
